FAERS Safety Report 24116579 (Version 1)
Quarter: 2024Q3

REPORT INFORMATION
  Report Type: Spontaneous
  Country: US (occurrence: US)
  Receive Date: 20240722
  Receipt Date: 20240722
  Transmission Date: 20241016
  Serious: No
  Sender: ASTELLAS
  Company Number: US-ASTELLAS-2024US011186

PATIENT
  Age: 50 Year
  Sex: Female

DRUGS (1)
  1. MYRBETRIQ [Suspect]
     Active Substance: MIRABEGRON
     Indication: Product used for unknown indication
     Route: 065
     Dates: start: 2023, end: 202404

REACTIONS (6)
  - Depression [Recovering/Resolving]
  - Lethargy [Recovering/Resolving]
  - Blood pressure increased [Recovered/Resolved]
  - Pain [Unknown]
  - Pain in extremity [Unknown]
  - Irritability [Recovering/Resolving]
